FAERS Safety Report 12662062 (Version 1)
Quarter: 2016Q3

REPORT INFORMATION
  Report Type: Spontaneous
  Country: PT (occurrence: PT)
  Receive Date: 20160817
  Receipt Date: 20160817
  Transmission Date: 20161109
  Serious: Yes (Hospitalization, Other)
  Sender: FDA-Public Use
  Company Number: PT-PRESTIUM-2016RN000346

PATIENT

DRUGS (1)
  1. ZOVIRAX [Suspect]
     Active Substance: ACYCLOVIR
     Indication: INFECTION PROPHYLAXIS
     Dosage: 200 MG, DAILY
     Route: 048
     Dates: start: 20160715, end: 20160726

REACTIONS (10)
  - Generalised erythema [Not Recovered/Not Resolved]
  - Decreased appetite [Not Recovered/Not Resolved]
  - Pyrexia [Not Recovered/Not Resolved]
  - Generalised oedema [Not Recovered/Not Resolved]
  - Throat irritation [Not Recovered/Not Resolved]
  - Diet refusal [Not Recovered/Not Resolved]
  - Respiratory distress [Not Recovered/Not Resolved]
  - Hypotension [Not Recovered/Not Resolved]
  - Delirium [Not Recovered/Not Resolved]
  - Rash generalised [Not Recovered/Not Resolved]

NARRATIVE: CASE EVENT DATE: 20160718
